FAERS Safety Report 21205423 (Version 1)
Quarter: 2022Q3

REPORT INFORMATION
  Report Type: Spontaneous
  Country: NL (occurrence: NL)
  Receive Date: 20220812
  Receipt Date: 20220812
  Transmission Date: 20221027
  Serious: Yes (Life-Threatening)
  Sender: FDA-Public Use
  Company Number: NL-SUN PHARMACEUTICAL INDUSTRIES LTD-2022RR-348455

PATIENT
  Age: 1 Day
  Sex: Female
  Weight: 3.1 kg

DRUGS (2)
  1. SERTRALINE [Suspect]
     Active Substance: SERTRALINE HYDROCHLORIDE
     Indication: Depression
     Dosage: 1X PER DAY 1 PIECE
     Route: 064
  2. FERROFUMARAAT TABLET 200MG / FERROFUMARAAT CF TABLET 200MG [Concomitant]
     Indication: Product used for unknown indication
     Dosage: TABLET, 200 MG (MILLIGRAM)
     Route: 065

REACTIONS (2)
  - Newborn persistent pulmonary hypertension [Unknown]
  - Maternal exposure during pregnancy [Unknown]
